FAERS Safety Report 5849967-5 (Version None)
Quarter: 2008Q3

REPORT INFORMATION
  Report Type: 
  Country: None (occurrence: None)
  Receive Date: 20080819
  Receipt Date: 20080811
  Transmission Date: 20090109
  Serious: Yes (Hospitalization)
  Sender: FDA-Public Use
  Company Number: FR-WYE-G01989708

PATIENT
  Age: 40 Year
  Sex: Female

DRUGS (11)
  1. EFFEXOR [Suspect]
     Indication: DEPRESSION
     Dosage: 112.5 MG TOTAL DAILY
     Route: 048
     Dates: start: 20050101, end: 20080720
  2. EFFEXOR [Suspect]
     Dosage: UNKNOWN
     Route: 048
     Dates: start: 20080721, end: 20080721
  3. EFFEXOR [Suspect]
     Dosage: 150 MG TOTAL DAILY
     Route: 048
     Dates: start: 20080101
  4. ATARAX [Suspect]
     Dosage: UNKNOWN
     Route: 048
     Dates: end: 20080721
  5. IMOVANE [Concomitant]
     Dosage: UNKNOWN
     Dates: start: 20080101
  6. LEVOTHYROX [Concomitant]
     Indication: HYPOTHYROIDISM
     Dosage: UNKNOWN
  7. SINTROM [Suspect]
     Dosage: UNKNOWN
     Route: 048
     Dates: start: 20080721, end: 20080721
  8. ALCOHOL [Suspect]
     Dosage: UNKNOWN
     Route: 048
     Dates: start: 20080721, end: 20080721
  9. XANAX [Suspect]
     Dosage: UNKNOWN
     Route: 048
     Dates: end: 20080721
  10. XANAX [Suspect]
     Dosage: UNKNOWN
     Route: 048
     Dates: start: 20080101
  11. MEPRONIZINE [Suspect]
     Dosage: UNKNOWN
     Route: 048
     Dates: end: 20080721

REACTIONS (4)
  - DRUG EXPOSURE DURING PREGNANCY [None]
  - MULTIPLE DRUG OVERDOSE INTENTIONAL [None]
  - SUICIDE ATTEMPT [None]
  - VOMITING [None]
